FAERS Safety Report 7329593-1 (Version None)
Quarter: 2011Q1

REPORT INFORMATION
  Report Type: 
  Country: None (occurrence: None)
  Receive Date: 20110303
  Receipt Date: 20110218
  Transmission Date: 20110831
  Serious: Yes (Hospitalization)
  Sender: FDA-Public Use
  Company Number: JP-PFIZER INC-2011037070

PATIENT
  Age: 47 Year
  Sex: Male

DRUGS (28)
  1. ADRIACIN [Suspect]
     Dosage: 30 MG/M2, X 1/4 WEEK
     Route: 041
     Dates: start: 20101126
  2. ENDOXAN [Suspect]
     Indication: ADULT T-CELL LYMPHOMA/LEUKAEMIA
     Dosage: 350 MG/M2, X 1/4 WEEK
     Route: 041
     Dates: start: 20101119
  3. BACTRIM [Concomitant]
     Dosage: 100 MG, 1X/DAY
     Route: 048
     Dates: start: 20101117
  4. LOXONIN [Concomitant]
     Dosage: 60 MG
     Route: 048
     Dates: start: 20110111
  5. POSTERISAN [Concomitant]
     Dosage: UNK
     Route: 061
     Dates: start: 20110208
  6. ONCOVIN [Suspect]
     Indication: ADULT T-CELL LYMPHOMA/LEUKAEMIA
     Dosage: 1 MG/M2, X 1/4 WEEK
     Route: 041
     Dates: start: 20101119
  7. MUCOSTA [Concomitant]
     Dosage: 100 MG, 3X/DAY
     Route: 048
     Dates: start: 20100118
  8. LAXOBERON [Concomitant]
     Dosage: 10 GGT
     Route: 048
     Dates: start: 20101123
  9. GRAN [Concomitant]
     Dosage: 75 MCG X 1/DAY
     Route: 058
     Dates: start: 20110210, end: 20110212
  10. ZOSYN [Concomitant]
     Dosage: 4.5 MG, 3X/DAY
     Route: 041
     Dates: start: 20110213
  11. RED BLOOD CELLS, LEUCOCYTE DEPLETED [Concomitant]
     Dosage: 2 IU/DAY
     Dates: start: 20110215, end: 20110216
  12. PREDONINE [Suspect]
     Indication: ADULT T-CELL LYMPHOMA/LEUKAEMIA
     Dosage: 40 MG/M2, X 1/4 WEEK
     Route: 048
     Dates: start: 20101119
  13. MAGMITT [Concomitant]
     Dosage: 330 MG
     Route: 048
     Dates: start: 20101116
  14. TAKEPRON [Concomitant]
     Dosage: 15 MG, 3X/DAY
     Route: 048
     Dates: start: 20101229
  15. NEUTROGIN [Concomitant]
     Dosage: 250MCG X 1/DAY
     Route: 041
     Dates: start: 20110213
  16. PLATELETS, HUMAN BLOOD [Concomitant]
     Dosage: 10 IU/DAY
     Dates: start: 20110213, end: 20110217
  17. PREDNISOLONE [Suspect]
     Indication: ADULT T-CELL LYMPHOMA/LEUKAEMIA
     Dosage: 40 MG/M2, X 1/4 WEEK
     Route: 048
     Dates: start: 20101208
  18. ITRIZOLE [Concomitant]
     Dosage: 20 ML, 1X/DAY
     Route: 048
     Dates: start: 20101121
  19. CRAVIT [Concomitant]
     Dosage: 500 MG, 1X/DAY
     Route: 048
     Dates: start: 20110211
  20. ADRIACIN [Suspect]
     Indication: ADULT T-CELL LYMPHOMA/LEUKAEMIA
     Dosage: 40 MG/M2, X 1/4 WEEK
     Route: 041
     Dates: start: 20101119
  21. PREDONINE [Suspect]
     Dosage: 40 MG/M2, X 1/4 WEEK
     Route: 048
     Dates: start: 20101126
  22. PARAPLATIN [Suspect]
     Indication: ADULT T-CELL LYMPHOMA/LEUKAEMIA
     Dosage: 250 MG/M2, X 1/4 WEEK
     Dates: start: 20101208
  23. MIYA BM [Concomitant]
     Dosage: 1 DF, 3X/DAY
     Route: 048
     Dates: start: 20110211
  24. ZOSYN [Concomitant]
     Dosage: 4.5 MG, 2X/DAY
     Route: 041
     Dates: start: 20110212, end: 20110212
  25. CYMERIN [Suspect]
     Indication: ADULT T-CELL LYMPHOMA/LEUKAEMIA
     Dosage: 60 MG/M2, X 1/4 WEEK
     Route: 048
     Dates: start: 20101126
  26. FILDESIN [Suspect]
     Indication: ADULT T-CELL LYMPHOMA/LEUKAEMIA
     Dosage: 2.4 MG/M2, X 1/4 WEEK
     Route: 041
     Dates: start: 20101208
  27. LASTET [Suspect]
     Indication: ADULT T-CELL LYMPHOMA/LEUKAEMIA
     Dosage: 100 MG/M2, X 1/4 WEEK
     Route: 041
     Dates: start: 20101208
  28. MYSLEE [Concomitant]
     Dosage: 5 MG
     Route: 048
     Dates: start: 20101122

REACTIONS (1)
  - FEBRILE NEUTROPENIA [None]
